FAERS Safety Report 9562971 (Version 1)
Quarter: 2013Q3

REPORT INFORMATION
  Report Type: Spontaneous
  Country: US (occurrence: US)
  Receive Date: 20130927
  Receipt Date: 20130927
  Transmission Date: 20140515
  Serious: Yes (Hospitalization)
  Sender: FDA-Public Use
  Company Number: US-GLAXOSMITHKLINE-A1042847A

PATIENT
  Sex: Female

DRUGS (13)
  1. ADVAIR [Suspect]
     Indication: ASTHMA
     Dosage: 1PUFF TWICE PER DAY
     Route: 055
     Dates: start: 2008
  2. PRO-AIR [Concomitant]
  3. ALUPENT NEB SOL [Concomitant]
  4. NEXIUM [Concomitant]
  5. THEOPHYLLINE [Concomitant]
  6. DALIRESP [Concomitant]
  7. ERYTHROMYCIN [Concomitant]
  8. PREDNISONE [Concomitant]
  9. LEXAPRO [Concomitant]
  10. KLONOPIN [Concomitant]
  11. SINGULAIR [Concomitant]
  12. TOPROL [Concomitant]
  13. MORPHINE [Concomitant]

REACTIONS (2)
  - Pneumonia [Recovered/Resolved]
  - Pulmonary mycosis [Recovered/Resolved]
